FAERS Safety Report 5320887-8 (Version None)
Quarter: 2007Q2

REPORT INFORMATION
  Report Type: 
  Country: None (occurrence: None)
  Receive Date: 20070504
  Receipt Date: 20070424
  Transmission Date: 20071010
  Serious: Yes (Other)
  Sender: FDA-Public Use
  Company Number: GXKR2007GB03768

PATIENT
  Age: 80 Year
  Sex: Male

DRUGS (7)
  1. METRONIDAZOLE [Suspect]
     Dosage: 500 MG, TID
  2. WARFARIN SODIUM [Suspect]
     Indication: AXILLARY VEIN THROMBOSIS
  3. CEFUROXIME [Concomitant]
  4. FERROUS SULPHATE (FERROUS SULFATE) [Concomitant]
  5. LEVOTHYROXINE SODIUM [Concomitant]
  6. LISINOPRIL [Concomitant]
  7. ACETAMINOPHEN [Concomitant]

REACTIONS (5)
  - DRUG INTERACTION [None]
  - HAEMOGLOBIN DECREASED [None]
  - INTERNATIONAL NORMALISED RATIO INCREASED [None]
  - SYNCOPE VASOVAGAL [None]
  - TOOTH EXTRACTION [None]
